FAERS Safety Report 6243941-5 (Version None)
Quarter: 2009Q2

REPORT INFORMATION
  Report Type: 
  Country: None (occurrence: None)
  Receive Date: 20090623
  Receipt Date: 20090617
  Transmission Date: 20091009
  Serious: Yes (Death, Hospitalization)
  Sender: FDA-Public Use
  Company Number: 2008US000189

PATIENT
  Age: 40 Year
  Sex: Female
  Weight: 68 kg

DRUGS (8)
  1. PROGRAF [Suspect]
     Indication: RENAL TRANSPLANT
     Dosage: 3.5 MG, BID, ORAL
     Route: 048
     Dates: start: 20060516, end: 20071203
  2. THYMOGLOBULIN [Concomitant]
  3. MYFORTIC [Concomitant]
  4. MULVITAMIN (VITAMINS NOS) [Concomitant]
  5. OSCAL D (VITAMIN D NOS) [Concomitant]
  6. PRILOSEC [Concomitant]
  7. ARANESP [Concomitant]
  8. PREMARIN [Concomitant]

REACTIONS (6)
  - APPENDICECTOMY [None]
  - BRAIN DEATH [None]
  - CARDIAC ARREST [None]
  - NEPHRECTOMY [None]
  - POST PROCEDURAL COMPLICATION [None]
  - SUBARACHNOID HAEMORRHAGE [None]
